FAERS Safety Report 5601147-4 (Version None)
Quarter: 2008Q1

REPORT INFORMATION
  Report Type: 
  Country: None (occurrence: None)
  Receive Date: 20080124
  Receipt Date: 20080111
  Transmission Date: 20080703
  Serious: Yes (Hospitalization)
  Sender: FDA-Public Use
  Company Number: PT-AMGEN-UK260426

PATIENT
  Sex: Female
  Weight: 48 kg

DRUGS (6)
  1. ARANESP [Suspect]
     Indication: RENAL FAILURE CHRONIC
     Route: 058
     Dates: start: 20070402
  2. METHYLDOPA [Concomitant]
     Route: 048
     Dates: start: 20070326, end: 20070905
  3. ALLOPURINOL [Concomitant]
     Route: 048
     Dates: start: 20060101, end: 20070905
  4. FOLIC ACID [Concomitant]
     Route: 048
     Dates: start: 20070101, end: 20070905
  5. IRON [Concomitant]
     Route: 048
     Dates: start: 20070101, end: 20070905
  6. VITAMIN B-12 [Concomitant]
     Route: 048
     Dates: start: 20070101, end: 20070905

REACTIONS (2)
  - CAESAREAN SECTION [None]
  - PREMATURE LABOUR [None]
